FAERS Safety Report 13088903 (Version 1)
Quarter: 2017Q1

REPORT INFORMATION
  Report Type: Spontaneous
  Country: US (occurrence: US)
  Receive Date: 20170105
  Receipt Date: 20170105
  Transmission Date: 20170428
  Serious: No
  Sender: FDA-Public Use
  Company Number: None

PATIENT
  Age: 71 Year
  Sex: Male
  Weight: 111.23 kg

DRUGS (3)
  1. ASPIRIN. [Concomitant]
     Active Substance: ASPIRIN
  2. VITAMIN B COMPLEX [Concomitant]
     Active Substance: CYANOCOBALAMIN\DEXPANTHENOL\NIACINAMIDE\PYRIDOXINE HYDROCHLORIDE\RIBOFLAVIN 5^-PHOSPHATE SODIUM\THIAMINE HYDROCHLORIDE\VITAMIN B COMPLEX
  3. LEVOFLOXACIN. [Suspect]
     Active Substance: LEVOFLOXACIN
     Indication: BRONCHITIS
     Dosage: ?          QUANTITY:V 15 MICE;?
     Route: 048

REACTIONS (12)
  - Nightmare [None]
  - Hypersensitivity [None]
  - Urticaria [None]
  - Pollakiuria [None]
  - Abdominal pain upper [None]
  - Disorientation [None]
  - Diarrhoea [None]
  - Anxiety [None]
  - Dizziness [None]
  - Vomiting [None]
  - Confusional state [None]
  - Pruritus [None]
